FAERS Safety Report 5723488-2 (Version None)
Quarter: 2008Q2

REPORT INFORMATION
  Report Type: 
  Country: None (occurrence: None)
  Receive Date: 20080425
  Receipt Date: 20080416
  Transmission Date: 20081010
  Serious: Yes (Hospitalization)
  Sender: FDA-Public Use
  Company Number: 6042328

PATIENT
  Age: 95 Year
  Sex: Female

DRUGS (12)
  1. BISOPROLOL FUMARATE [Suspect]
     Indication: HYPERTENSION
     Dosage: ORAL
     Route: 048
     Dates: end: 20070328
  2. RISPERDAL [Suspect]
     Indication: CONFUSIONAL STATE
     Dosage: 0.5 MG (0.5 MG, 1 D) ORAL
     Route: 048
     Dates: start: 20070323, end: 20080328
  3. SERESTA(10 MG, TABLET) (OXAZEPAM) [Suspect]
     Indication: SLEEP DISORDER
     Dosage: 10 MG (10 MG, 1 D) ORAL
     Route: 048
     Dates: start: 20070323, end: 20070329
  4. NITRIDERM TTS (GLYCERYL TRINITRATE) [Suspect]
     Indication: MYOCARDIAL ISCHAEMIA
     Dosage: 10 MG (10 MG, 1 D) TRANSDERMAL : 20 MG (20 MG, 1 D) TRANSDERMAL
     Route: 062
     Dates: end: 20070323
  5. NITRIDERM TTS (GLYCERYL TRINITRATE) [Suspect]
     Indication: MYOCARDIAL ISCHAEMIA
     Dosage: 10 MG (10 MG, 1 D) TRANSDERMAL : 20 MG (20 MG, 1 D) TRANSDERMAL
     Route: 062
     Dates: start: 20070323, end: 20070329
  6. ESIDREX (25 MG, TABLET) (HYDROCHLOROTHIAZIDE) [Suspect]
     Indication: HYPERTENSION
     Dosage: 25 MG (25 MG, 1 D) ORAL
     Route: 048
     Dates: start: 20070324
  7. APROVERL (300 MG, TABLET) (IRBESARTAN) [Suspect]
     Indication: HYPERTENSION
     Dosage: 300 MG (300 MG, 1 D) ORAL
     Route: 048
  8. ADANCOR 20 MG(20 MG) (NICORDANIL) [Suspect]
     Indication: MYOCARDIAL ISCHAEMIA
     Dosage: 40 MG (40 MG,1 D) ORAL
     Route: 048
  9. MORPHINE SULFATE [Concomitant]
  10. MORPHINE SULFATE [Concomitant]
  11. PERSANTINE [Concomitant]
  12. ACETAMINOPHEN [Concomitant]

REACTIONS (5)
  - BRADYCARDIA [None]
  - CONSTIPATION [None]
  - HYPOTHERMIA [None]
  - LOCKED-IN SYNDROME [None]
  - SOMNOLENCE [None]
